FAERS Safety Report 7763891-2 (Version None)
Quarter: 2011Q3

REPORT INFORMATION
  Report Type: 
  Country: None (occurrence: None)
  Receive Date: 20110921
  Receipt Date: 20110912
  Transmission Date: 20111222
  Serious: Yes (Hospitalization)
  Sender: FDA-Public Use
  Company Number: RU-BAYER-2011-066757

PATIENT
  Age: 53 Year
  Sex: Female

DRUGS (1)
  1. MIRENA [Suspect]
     Indication: DYSFUNCTIONAL UTERINE BLEEDING
     Dosage: 20 MCG/24HR, CONT
     Route: 015
     Dates: start: 20110723, end: 20110724

REACTIONS (6)
  - PRURITUS [None]
  - GENERALISED OEDEMA [None]
  - RASH GENERALISED [None]
  - ASTHENIA [None]
  - MALAISE [None]
  - HYPERSENSITIVITY [None]
